FAERS Safety Report 5510613-1 (Version None)
Quarter: 2007Q4

REPORT INFORMATION
  Report Type: 
  Country: None (occurrence: None)
  Receive Date: 20071108
  Receipt Date: 20071102
  Transmission Date: 20080405
  Serious: Yes (Disabling, Other)
  Sender: FDA-Public Use
  Company Number: US-BOEHRINGER INGELHEIM PHARMACEUTICALS, INC.-2007-BP-21613BP

PATIENT
  Age: 66 Year
  Sex: Male

DRUGS (4)
  1. ZANTAC 150 [Suspect]
     Indication: DYSPEPSIA
     Route: 048
     Dates: start: 20061101, end: 20070916
  2. ZANTAC 150 [Suspect]
  3. ZANTAC 150 [Suspect]
     Indication: GASTROOESOPHAGEAL REFLUX DISEASE
  4. PREDNISONE TAB [Concomitant]

REACTIONS (7)
  - CATARACT OPERATION [None]
  - CONSTIPATION [None]
  - DIPLOPIA [None]
  - NERVOUSNESS [None]
  - TREMOR [None]
  - VISION BLURRED [None]
  - VISUAL ACUITY REDUCED [None]
